FAERS Safety Report 8587512-4 (Version None)
Quarter: 2012Q3

REPORT INFORMATION
  Report Type: 
  Country: None (occurrence: None)
  Receive Date: 20120810
  Receipt Date: 20120806
  Transmission Date: 20120928
  Serious: Yes (Other)
  Sender: FDA-Public Use
  Company Number: JP-VERTEX PHARMACEUTICALS INC.-AE-2012-009736

PATIENT
  Age: 57 Year
  Sex: Female

DRUGS (10)
  1. EPADEL S [Concomitant]
     Route: 048
  2. CLARITIN REDITABS [Concomitant]
     Route: 048
  3. ACECOL [Concomitant]
     Route: 048
  4. TELAVIC [Suspect]
     Indication: HEPATITIS C
     Route: 048
     Dates: start: 20120428, end: 20120717
  5. RIBAVIRIN [Concomitant]
     Route: 048
     Dates: start: 20120518, end: 20120628
  6. RIBAVIRIN [Concomitant]
     Indication: HEPATITIS C
     Route: 048
     Dates: start: 20120428, end: 20120517
  7. FEROTYM [Concomitant]
     Route: 048
  8. RIBAVIRIN [Concomitant]
     Route: 048
     Dates: start: 20120629
  9. PEGINTERFERON ALFA-2B [Concomitant]
     Route: 058
     Dates: start: 20120428
  10. LIVALO [Concomitant]
     Route: 048

REACTIONS (2)
  - ANAEMIA [None]
  - RASH [None]
